FAERS Safety Report 12618255 (Version 2)
Quarter: 2016Q3

REPORT INFORMATION
  Report Type: Spontaneous
  Country: US (occurrence: US)
  Receive Date: 20160803
  Receipt Date: 20160819
  Transmission Date: 20161109
  Serious: Yes (Other)
  Sender: FDA-Public Use
  Company Number: US-PFIZER INC-2016360830

PATIENT
  Age: 62 Year
  Sex: Female
  Weight: 57.38 kg

DRUGS (2)
  1. PRIMIDONE. [Concomitant]
     Active Substance: PRIMIDONE
     Indication: EPILEPSY
     Dosage: UNK
  2. PHENYTOIN. [Suspect]
     Active Substance: PHENYTOIN
     Indication: EPILEPSY
     Dosage: 50 MG, 2X/DAY
     Dates: start: 201603

REACTIONS (5)
  - Injury [Unknown]
  - Drug ineffective [Unknown]
  - Jaw fracture [Unknown]
  - Generalised tonic-clonic seizure [Unknown]
  - Fall [Unknown]

NARRATIVE: CASE EVENT DATE: 2016
